FAERS Safety Report 8640576 (Version 2)
Quarter: 2013Q2

REPORT INFORMATION
  Report Type: Spontaneous
  Country: US (occurrence: US)
  Receive Date: 20120628
  Receipt Date: 20120709
  Transmission Date: 20140414
  Serious: Yes (Hospitalization, Other)
  Sender: FDA-Public Use
  Company Number: PHHY2010US60959

PATIENT
  Age: 65 Year
  Sex: Male

DRUGS (2)
  1. GLEEVEC [Suspect]
     Indication: CHRONIC MYELOID LEUKAEMIA
     Route: 048
     Dates: start: 20100504
  2. R-HCVAD [Concomitant]
     Indication: ACUTE LYMPHOCYTIC LEUKAEMIA

REACTIONS (4)
  - DEATH [Fatal]
  - ESCHERICHIA TEST POSITIVE [Unknown]
  - FEBRILE NEUTROPENIA [Recovered/Resolved]
  - WHITE BLOOD CELL COUNT DECREASED [Unknown]
